FAERS Safety Report 9910097 (Version 1)
Quarter: 2014Q1

REPORT INFORMATION
  Report Type: Spontaneous
  Country: US (occurrence: None)
  Receive Date: 20140218
  Receipt Date: 20140218
  Transmission Date: 20141002
  Serious: Yes (Other)
  Sender: FDA-Public Use
  Company Number: None

PATIENT
  Age: 27 Year
  Sex: Male
  Weight: 70.31 kg

DRUGS (1)
  1. CREST PRO HEALTH [Suspect]
     Indication: DENTAL DISORDER PROPHYLAXIS
     Dates: start: 20140213, end: 20140213

REACTIONS (5)
  - Chemical injury [None]
  - Thermal burn [None]
  - Oral discomfort [None]
  - Oral pain [None]
  - Oral mucosal erythema [None]
